FAERS Safety Report 9402280 (Version 1)
Quarter: 2013Q3

REPORT INFORMATION
  Report Type: Spontaneous
  Country: US (occurrence: US)
  Receive Date: 20130716
  Receipt Date: 20130716
  Transmission Date: 20140515
  Serious: No
  Sender: FDA-Public Use
  Company Number: US-GLAXOSMITHKLINE-A1021834A

PATIENT
  Age: 44 Year
  Sex: Male

DRUGS (2)
  1. NICORETTE MINIS MINT 4 MG [Suspect]
     Indication: EX-TOBACCO USER
     Dates: start: 201207
  2. NICORETTE MINIS MINT 2 MG [Suspect]
     Indication: EX-TOBACCO USER
     Dates: start: 201304

REACTIONS (3)
  - Hiccups [Recovered/Resolved]
  - Drug ineffective [Unknown]
  - Drug administration error [Unknown]
